FAERS Safety Report 7784043-6 (Version None)
Quarter: 2011Q3

REPORT INFORMATION
  Report Type: 
  Country: None (occurrence: None)
  Receive Date: 20110928
  Receipt Date: 20110602
  Transmission Date: 20111222
  Serious: Yes (Other)
  Sender: FDA-Public Use
  Company Number: NL-CELGENEUS-114-20785-11092111

PATIENT

DRUGS (4)
  1. PEMETREXED [Concomitant]
     Route: 065
  2. CARBOPLATIN [Concomitant]
     Dosage: AUC 5
     Route: 065
  3. THALIDOMIDE [Suspect]
     Dosage: 200 MILLIGRAM
     Route: 048
  4. CISPLATIN [Concomitant]

REACTIONS (6)
  - CONSTIPATION [None]
  - PERIPHERAL SENSORY NEUROPATHY [None]
  - PLATELET COUNT DECREASED [None]
  - DISEASE PROGRESSION [None]
  - CARDIOVASCULAR DISORDER [None]
  - LEUKOPENIA [None]
